FAERS Safety Report 7311810-5 (Version None)
Quarter: 2011Q1

REPORT INFORMATION
  Report Type: 
  Country: None (occurrence: None)
  Receive Date: 20110224
  Receipt Date: 20110217
  Transmission Date: 20110831
  Serious: Yes (Hospitalization)
  Sender: FDA-Public Use
  Company Number: IL-BRISTOL-MYERS SQUIBB COMPANY-15510670

PATIENT
  Age: 63 Year
  Sex: Male

DRUGS (7)
  1. LANTUS [Suspect]
     Indication: TYPE 2 DIABETES MELLITUS
  2. GLUCOPHAGE [Suspect]
     Indication: TYPE 2 DIABETES MELLITUS
  3. APIDRA [Suspect]
     Indication: TYPE 2 DIABETES MELLITUS
  4. BLINDED: SAXAGLIPTIN [Suspect]
     Indication: TYPE 2 DIABETES MELLITUS
     Dosage: WITHDREW CONSENT LAST DOSE:20JAN2011
     Dates: start: 20101124
  5. BLINDED: PLACEBO [Suspect]
     Indication: TYPE 2 DIABETES MELLITUS
     Dosage: WITHDREW CONSENT LAST DOSE:20JAN2011
     Dates: start: 20101124
  6. ASPIRIN [Concomitant]
     Dosage: 1 DF={100MG
     Dates: start: 20101124
  7. ANGIOTENSIN CONVERTING ENZYME [Concomitant]
     Dates: start: 20101124

REACTIONS (2)
  - SUPRAVENTRICULAR TACHYCARDIA [None]
  - PNEUMONIA [None]
